FAERS Safety Report 10049603 (Version 2)
Quarter: 2014Q2

REPORT INFORMATION
  Report Type: Spontaneous
  Country: GB (occurrence: GB)
  Receive Date: 20140401
  Receipt Date: 20140401
  Transmission Date: 20141212
  Serious: Yes (Other)
  Sender: FDA-Public Use
  Company Number: PHFR2014GB000931

PATIENT
  Age: 32 Year
  Sex: Male

DRUGS (16)
  1. CLOZARIL [Suspect]
     Dosage: UNK
     Route: 048
     Dates: start: 20120516
  2. CLOZARIL [Suspect]
     Dosage: 125 MG, BID
     Route: 048
  3. CARBAMAZEPINE [Concomitant]
     Dosage: 600 MG
  4. LEVETIRACETAM [Concomitant]
     Dosage: 1250 MG
  5. CLONAZEPAM [Concomitant]
  6. LEVOTHYROXINE [Concomitant]
     Indication: HYPOTHYROIDISM
     Dosage: 125 UG, DAILY
     Route: 048
  7. LEVOTHYROXINE [Concomitant]
     Dosage: 125 UG, DAILY
     Route: 048
  8. HALOPERIDOL [Concomitant]
     Dosage: 2 MG, BID
  9. HALOPERIDOL [Concomitant]
     Dosage: 0.5 MG, MANE
  10. APO-FOLIC ACID [Concomitant]
     Dosage: 5 MG, DAILY
     Route: 048
  11. DESMOPRESSIN [Concomitant]
     Dosage: UNK UKN, UNK
  12. SODIUM VALPROATE [Concomitant]
     Dosage: 600 MG, QD
  13. PIRENZEPINE [Concomitant]
     Dosage: 50 MG, BID
  14. RISPERIDONE [Concomitant]
     Dosage: UNK UKN, UNK
  15. LANSOPRAZOLE [Concomitant]
     Dosage: UNK UKN, UNK
  16. CALCICHEW [Concomitant]
     Dosage: UNK UKN, UNK

REACTIONS (2)
  - Inappropriate schedule of drug administration [Recovered/Resolved]
  - Sedation [Recovered/Resolved]
